FAERS Safety Report 8385857-4 (Version None)
Quarter: 2012Q2

REPORT INFORMATION
  Report Type: 
  Country: None (occurrence: None)
  Receive Date: 20120523
  Receipt Date: 20120507
  Transmission Date: 20120825
  Serious: Yes (Hospitalization, Other)
  Sender: FDA-Public Use
  Company Number: ADE 12-008

PATIENT
  Age: 47 Year
  Sex: Male
  Weight: 95.5 kg

DRUGS (1)
  1. HEPARIN SODIUM [Suspect]
     Indication: MEDICAL DEVICE CHANGE
     Dosage: 10,000 UNITS, ONCE, IV
     Route: 042
     Dates: start: 20120427

REACTIONS (1)
  - DRUG INEFFECTIVE [None]
